FAERS Safety Report 4991675-7 (Version None)
Quarter: 2006Q2

REPORT INFORMATION
  Report Type: 
  Country: None (occurrence: None)
  Receive Date: 20060504
  Receipt Date: 20060424
  Transmission Date: 20061013
  Serious: Yes (Other)
  Sender: FDA-Public Use
  Company Number: PHEH2006US05350

PATIENT
  Age: 51 Year
  Sex: Female

DRUGS (5)
  1. VIVELLE-DOT [Suspect]
     Indication: HORMONE REPLACEMENT THERAPY
     Dosage: 0.1 MG/DAY, 2X WEEK
     Route: 062
     Dates: start: 20060118, end: 20060403
  2. VIVELLE-DOT [Suspect]
     Dosage: 0.075 MG/DAY, 2 X WEEK
     Route: 062
     Dates: start: 20060410, end: 20060416
  3. VIVELLE-DOT [Suspect]
     Dosage: 0.1 MG/DAY, 2X WEEK
     Route: 062
     Dates: start: 20060417
  4. TESTOSTERONE [Concomitant]
     Route: 048
     Dates: start: 20060118, end: 20060317
  5. CYTOMEL [Concomitant]
     Indication: HYPOTHYROIDISM
     Dosage: 12.5 UNK, UNK
     Route: 048
     Dates: end: 20060317

REACTIONS (3)
  - ANXIETY [None]
  - DRUG TOXICITY [None]
  - PANIC ATTACK [None]
